FAERS Safety Report 5287072-X (Version None)
Quarter: 2007Q2

REPORT INFORMATION
  Report Type: 
  Country: None (occurrence: None)
  Receive Date: 20070404
  Receipt Date: 20070328
  Transmission Date: 20071010
  Serious: Yes (Death, Hospitalization, Other)
  Sender: FDA-Public Use
  Company Number: DE-PFIZER INC-2006063451

PATIENT
  Sex: Male
  Weight: 71 kg

DRUGS (19)
  1. SU-011,248 [Suspect]
     Indication: METASTATIC RENAL CELL CARCINOMA
     Route: 048
     Dates: start: 20051212, end: 20060122
  2. SU-011,248 [Suspect]
     Route: 048
     Dates: start: 20060123, end: 20060205
  3. SU-011,248 [Suspect]
     Route: 048
     Dates: start: 20060217, end: 20060504
  4. NITRENDIPINE [Concomitant]
     Indication: HYPERTENSION
  5. TORSEMIDE [Concomitant]
     Indication: HYPERTENSION
     Dates: start: 20010101, end: 20060331
  6. METOPROLOL SUCCINATE [Concomitant]
     Indication: HYPERTENSION
     Dates: start: 20010101
  7. URAPIDIL [Concomitant]
     Indication: HYPERTENSION
     Dates: start: 20010101, end: 20060331
  8. VITAMIN D [Concomitant]
     Dates: start: 20050101
  9. PHOSPHORUS [Concomitant]
     Dates: start: 20060119
  10. PANTOPRAZOLE [Concomitant]
     Indication: PROPHYLAXIS
     Dates: start: 20060119
  11. PANTOPRAZOLE [Concomitant]
     Indication: HYPERCHLORHYDRIA
  12. SPIRONOLACTONE [Concomitant]
     Indication: OEDEMA
     Dates: start: 20060119
  13. NYSTATIN [Concomitant]
     Indication: MUCOSAL INFLAMMATION
     Dates: start: 20060119
  14. HYDROCHLOROTHIAZIDE [Concomitant]
     Indication: HYPERTENSION
     Dates: start: 20060401
  15. CLINDAMYCIN [Concomitant]
     Indication: PROPHYLAXIS
     Dates: start: 20060123, end: 20060201
  16. PREDNISOLONE [Concomitant]
     Indication: HYPERSENSITIVITY
     Dates: start: 20060207, end: 20060227
  17. PREDNISOLONE [Concomitant]
     Indication: RASH
  18. MOVICOL [Concomitant]
     Indication: CONSTIPATION
     Dates: start: 20051227, end: 20060123
  19. POTASSIUM ACETATE [Concomitant]
     Dates: start: 20060403

REACTIONS (4)
  - ANAEMIA [None]
  - CARDIAC ARREST [None]
  - GASTRITIS HAEMORRHAGIC [None]
  - HAEMATEMESIS [None]
